FAERS Safety Report 19637947 (Version 3)
Quarter: 2023Q1

REPORT INFORMATION
  Report Type: Report from Study
  Country: AR (occurrence: AR)
  Receive Date: 20210730
  Receipt Date: 20230213
  Transmission Date: 20230417
  Serious: Yes (Hospitalization)
  Sender: FDA-Public Use
  Company Number: AR-NOVARTISPH-NVSC2021AR151971

PATIENT
  Age: 14 Year
  Sex: Female
  Weight: 70.9 kg

DRUGS (3)
  1. DABRAFENIB [Suspect]
     Active Substance: DABRAFENIB
     Indication: Ganglioglioma
     Dosage: 300 MG, QD
     Route: 048
     Dates: start: 20210417, end: 20210519
  2. DABRAFENIB [Suspect]
     Active Substance: DABRAFENIB
     Dosage: 150 MG, QD
     Route: 048
     Dates: start: 20210707, end: 20210715
  3. TRAMETINIB [Suspect]
     Active Substance: TRAMETINIB
     Indication: Ganglioglioma
     Dosage: UNK
     Route: 065

REACTIONS (5)
  - Erythema nodosum [Recovering/Resolving]
  - Hyperaesthesia [Recovering/Resolving]
  - Pyrexia [Recovered/Resolved]
  - Erythema nodosum [Recovered/Resolved]
  - Pyrexia [Recovered/Resolved]

NARRATIVE: CASE EVENT DATE: 20210519
